FAERS Safety Report 6475190-X (Version None)
Quarter: 2009Q4

REPORT INFORMATION
  Report Type: 
  Country: None (occurrence: None)
  Receive Date: 20091204
  Receipt Date: 20090615
  Transmission Date: 20100525
  Serious: No
  Sender: FDA-Public Use
  Company Number: US-ELI_LILLY_AND_COMPANY-US200903005990

PATIENT
  Sex: Female
  Weight: 56.236 kg

DRUGS (4)
  1. CYMBALTA [Suspect]
     Indication: MAJOR DEPRESSION
     Dosage: 60 MG, UNK
     Route: 048
     Dates: start: 20060907, end: 20080930
  2. WELLBUTRIN [Concomitant]
     Indication: DEPRESSION
     Dosage: 400 MG, UNK
     Route: 048
  3. TRAZODONE [Concomitant]
     Indication: SLEEP DISORDER
     Dosage: 150 MG, UNK
     Route: 048
     Dates: end: 20080930
  4. KLONOPIN [Concomitant]
     Indication: ANXIETY

REACTIONS (1)
  - LIVER FUNCTION TEST ABNORMAL [None]
